FAERS Safety Report 7768714-3 (Version None)
Quarter: 2011Q3

REPORT INFORMATION
  Report Type: 
  Country: None (occurrence: None)
  Receive Date: 20110922
  Receipt Date: 20101221
  Transmission Date: 20111222
  Serious: Yes (Hospitalization)
  Sender: FDA-Public Use
  Company Number: US-ASTRAZENECA-2011SE00795

PATIENT
  Age: 19198 Day
  Sex: Male

DRUGS (24)
  1. SEROQUEL [Suspect]
     Dosage: 200 TO 300 MG
     Route: 048
     Dates: end: 20060614
  2. HYDROCHLOROTHIAZIDE [Concomitant]
     Dates: start: 20090101
  3. TRAZODONE HCL [Concomitant]
     Dosage: 225 MG 24 HR
     Dates: start: 20100802
  4. VARDENAFIL HCL [Concomitant]
     Dates: end: 20060528
  5. OMEPRAZOLE [Concomitant]
     Dates: end: 20060613
  6. SEROQUEL [Suspect]
     Route: 048
     Dates: start: 20100804
  7. SPIRONOLACTONE [Concomitant]
     Dates: start: 20090101
  8. ALBUTEROL [Concomitant]
     Dosage: 90 MCG 200 D
     Route: 048
     Dates: start: 20100804
  9. BETA BLOCKER [Concomitant]
     Dates: start: 20090101
  10. TRAZODONE HCL [Concomitant]
     Dates: end: 20060531
  11. HYDROCODONE BITARTRATE AND ACETAMINOPHEN [Concomitant]
     Dosage: 10/500 MG
     Dates: start: 20100804
  12. DIVALPROEX SODIUM [Concomitant]
     Dosage: 500 MG 24 HR
     Dates: end: 20060614
  13. NPH INSULIN [Concomitant]
     Dosage: 20 UNITS AM 15 UNITS PM, 25 AM
     Dates: start: 20090101
  14. HYDROCHLOROTHIAZIDE [Concomitant]
     Dates: start: 20100810
  15. SPIRONOLACTONE [Concomitant]
     Dates: start: 20100723
  16. DOCUSATE NA [Concomitant]
     Dates: start: 20101029
  17. HYDROXYZINE [Concomitant]
     Dates: start: 20100901
  18. OMEPRAZOLE [Concomitant]
     Dates: start: 20100802
  19. DIGOXIN [Concomitant]
     Dates: start: 20100725
  20. REGULAR INSULIN TIDAC [Concomitant]
     Dosage: 10 UNITS AND SLIDING SCALE
     Dates: start: 20090101
  21. HYDROXYZINE [Concomitant]
     Dates: end: 20060528
  22. TRAMADOL HCL [Concomitant]
     Dates: end: 20060718
  23. ASPIRIN [Concomitant]
     Dates: start: 20090101
  24. METOPROLOL TARTRATE [Concomitant]
     Dates: start: 20090101

REACTIONS (6)
  - DEHYDRATION [None]
  - TYPE 2 DIABETES MELLITUS [None]
  - CARDIAC FAILURE CONGESTIVE [None]
  - HYPERTENSION [None]
  - HYPOKALAEMIA [None]
  - HYPERGLYCAEMIA [None]
